FAERS Safety Report 5120037-7 (Version None)
Quarter: 2006Q3

REPORT INFORMATION
  Report Type: 
  Country: None (occurrence: None)
  Receive Date: 20060929
  Receipt Date: 20060918
  Transmission Date: 20061208
  Serious: Yes (Hospitalization, Other)
  Sender: FDA-Public Use
  Company Number: 2006000029

PATIENT
  Age: 59 Year
  Sex: Male
  Weight: 76 kg

DRUGS (6)
  1. SUTENT [Suspect]
     Indication: METASTATIC RENAL CELL CARCINOMA
     Dosage: 37.5 MG (37.5 MG, 1 IN 1 D), ORAL
     Route: 048
     Dates: start: 20051213
  2. METOPROLOL (METOPROLOL) [Concomitant]
  3. LOCOL (FLUVASTATIN SODIUM) [Concomitant]
  4. ACETYLSALICYLIC ACID SRT [Concomitant]
  5. FOSAMAX [Concomitant]
  6. METOPROLOL TARTRATE [Concomitant]

REACTIONS (4)
  - DIZZINESS [None]
  - FALL [None]
  - VERTIGO [None]
  - WOUND [None]
